FAERS Safety Report 4745867-2 (Version None)
Quarter: 2005Q3

REPORT INFORMATION
  Report Type: 
  Country: None (occurrence: None)
  Receive Date: 20050816
  Receipt Date: 20050714
  Transmission Date: 20060218
  Serious: Yes (Life-Threatening)
  Sender: FDA-Public Use
  Company Number: 2005AP03876

PATIENT
  Age: 26933 Day
  Sex: Female

DRUGS (17)
  1. SEROQUEL [Suspect]
     Indication: DEPRESSION
     Route: 048
     Dates: start: 20050301, end: 20050403
  2. SEROQUEL [Suspect]
     Indication: DELIRIUM
     Route: 048
     Dates: start: 20050301, end: 20050403
  3. SEROQUEL [Suspect]
     Dosage: RESUMED AT A DECREASED DOSAGE
     Route: 048
     Dates: start: 20050426, end: 20050516
  4. SEROQUEL [Suspect]
     Dosage: RESUMED AT A DECREASED DOSAGE
     Route: 048
     Dates: start: 20050426, end: 20050516
  5. TETRAMIDE [Concomitant]
     Route: 048
     Dates: end: 20050403
  6. TETRAMIDE [Concomitant]
     Route: 048
     Dates: start: 20050406, end: 20050515
  7. TETRAMIDE [Concomitant]
     Route: 048
     Dates: start: 20050516
  8. HALCION [Concomitant]
     Route: 048
     Dates: end: 20050403
  9. ATARAX [Concomitant]
     Route: 048
     Dates: end: 20050403
  10. PURSENNID [Concomitant]
     Route: 048
     Dates: end: 20050403
  11. TECIPUL [Concomitant]
     Indication: DEPRESSION
     Route: 048
     Dates: start: 20041001, end: 20050301
  12. AMOXAN [Concomitant]
     Indication: DEPRESSION
     Route: 048
     Dates: start: 20050301, end: 20050403
  13. RESLIN [Concomitant]
     Indication: DEPRESSION
     Route: 048
     Dates: start: 20050301, end: 20050403
  14. GRAMALIL [Concomitant]
     Indication: DELIRIUM
     Route: 048
     Dates: start: 20050407, end: 20050705
  15. SERENACE [Concomitant]
     Indication: DELIRIUM
     Route: 048
     Dates: start: 20050407, end: 20050516
  16. ANTIDEPRESSANT (UNSPECIFIED) [Concomitant]
     Indication: DEPRESSION
  17. UNSPECIFIED DRUG [Concomitant]
     Indication: DELIRIUM

REACTIONS (8)
  - AGRANULOCYTOSIS [None]
  - C-REACTIVE PROTEIN INCREASED [None]
  - DELIRIUM [None]
  - DRUG INEFFECTIVE [None]
  - HYPERCREATININAEMIA [None]
  - PYREXIA [None]
  - SEDATION [None]
  - WHITE BLOOD CELL COUNT INCREASED [None]
